FAERS Safety Report 13195579 (Version 1)
Quarter: 2017Q1

REPORT INFORMATION
  Report Type: Spontaneous
  Country: None (occurrence: US)
  Receive Date: 20170207
  Receipt Date: 20170207
  Transmission Date: 20170428
  Serious: Yes (Hospitalization)
  Sender: FDA-Public Use
  Company Number: None

PATIENT
  Age: 69 Year
  Sex: Male
  Weight: 110.77 kg

DRUGS (6)
  1. GLIMEPIRIDE. [Concomitant]
     Active Substance: GLIMEPIRIDE
  2. VALSARTAN. [Concomitant]
     Active Substance: VALSARTAN
  3. MULTIVITAMIN WITH MINERALS [Concomitant]
     Active Substance: MINERALS\VITAMINS
  4. SIMVASTATIN. [Concomitant]
     Active Substance: SIMVASTATIN
  5. METFORMIN [Concomitant]
     Active Substance: METFORMIN HYDROCHLORIDE
  6. MEMANTINE. [Suspect]
     Active Substance: MEMANTINE
     Indication: METASTASES TO CENTRAL NERVOUS SYSTEM
     Route: 048
     Dates: start: 20160803, end: 20170118

REACTIONS (5)
  - Dysarthria [None]
  - Memory impairment [None]
  - Facial paralysis [None]
  - Condition aggravated [None]
  - Mental status changes [None]

NARRATIVE: CASE EVENT DATE: 20170128
